FAERS Safety Report 11279255 (Version 5)
Quarter: 2016Q1

REPORT INFORMATION
  Report Type: Report from Study
  Country: US (occurrence: US)
  Receive Date: 20150717
  Receipt Date: 20160204
  Transmission Date: 20160525
  Serious: Yes (Hospitalization)
  Sender: FDA-Public Use
  Company Number: PHEH2015US013335

PATIENT
  Age: 15 Year
  Sex: Female
  Weight: 56 kg

DRUGS (5)
  1. AFINITOR [Suspect]
     Active Substance: EVEROLIMUS
     Dosage: 7.5 MG, QD
     Route: 048
     Dates: start: 20150709
  2. AFINITOR [Suspect]
     Active Substance: EVEROLIMUS
     Dosage: 7.5 MG, QD (7.5 MG ALTERNATING WITH 5 MG EVERY OTHER DAY)
     Route: 048
     Dates: start: 20151218
  3. AFINITOR [Suspect]
     Active Substance: EVEROLIMUS
     Dosage: 7.5 MG, QD (7.5 MG ALTERNATING WITH 5 MG EVERY OTHER DAY)
     Route: 048
  4. AFINITOR [Suspect]
     Active Substance: EVEROLIMUS
     Indication: ANGIOMYOLIPOMA
     Dosage: UNK
     Route: 048
  5. AFINITOR [Suspect]
     Active Substance: EVEROLIMUS
     Dosage: 5 MG, QD
     Route: 048

REACTIONS (9)
  - Appendicitis perforated [Recovered/Resolved]
  - Renal haemorrhage [Unknown]
  - Abdominal pain [Unknown]
  - Headache [Unknown]
  - C-reactive protein increased [Unknown]
  - Pain [Unknown]
  - Neoplasm [Unknown]
  - Lymphocyte count decreased [Unknown]
  - Neutrophil count increased [Unknown]

NARRATIVE: CASE EVENT DATE: 20150421
